FAERS Safety Report 10997868 (Version 1)
Quarter: 2015Q2

REPORT INFORMATION
  Report Type: Spontaneous
  Country: US (occurrence: None)
  Receive Date: 20150407
  Receipt Date: 20150407
  Transmission Date: 20150821
  Serious: No
  Sender: FDA-Public Use
  Company Number: None

PATIENT
  Age: 8 Year
  Sex: Female
  Weight: 22.68 kg

DRUGS (1)
  1. GUANFACINE. [Suspect]
     Active Substance: GUANFACINE
     Indication: IMPULSE-CONTROL DISORDER
     Route: 048
     Dates: start: 20120130, end: 20120911

REACTIONS (3)
  - Drug ineffective [None]
  - Product substitution issue [None]
  - Product formulation issue [None]

NARRATIVE: CASE EVENT DATE: 20110912
